FAERS Safety Report 15853825 (Version 1)
Quarter: 2019Q1

REPORT INFORMATION
  Report Type: Spontaneous
  Country: US (occurrence: US)
  Receive Date: 20190121
  Receipt Date: 20190121
  Transmission Date: 20190417
  Serious: Yes (Hospitalization)
  Sender: FDA-Public Use
  Company Number: None

PATIENT
  Age: 78 Year
  Sex: Female

DRUGS (7)
  1. ANASTROZOLE  1 MG TAB [Concomitant]
  2. SENSIPAR [Suspect]
     Active Substance: CINACALCET HYDROCHLORIDE
     Indication: PRODUCT USED FOR UNKNOWN INDICATION
     Route: 048
     Dates: start: 20180119, end: 20190121
  3. FUROSEMIDE 40MG TAB [Concomitant]
  4. METOPROLOL TARTRATE 50 MG TAB [Concomitant]
     Active Substance: METOPROLOL TARTRATE
  5. DIGOX 0.125MG TAB [Concomitant]
  6. POTASSIUM CHLORIDE 10 MEQ ER CAP [Concomitant]
  7. LISINOPRIL 2.5 MG TAB [Concomitant]

REACTIONS (1)
  - Viral infection [None]

NARRATIVE: CASE EVENT DATE: 20190118
